FAERS Safety Report 18453408 (Version 1)
Quarter: 2020Q4

REPORT INFORMATION
  Report Type: Spontaneous
  Country: US (occurrence: US)
  Receive Date: 20201102
  Receipt Date: 20201102
  Transmission Date: 20210114
  Serious: Yes (Other)
  Sender: FDA-Public Use
  Company Number: US-JNJFOC-20201037600

PATIENT
  Age: 73 Year
  Sex: Female

DRUGS (10)
  1. DARZALEX [Suspect]
     Active Substance: DARATUMUMAB
     Indication: PLASMA CELL MYELOMA
     Dosage: WEEKLY FOR CYCLES 1 AND 2
     Route: 042
  2. OMEPRAZOLE. [Concomitant]
     Active Substance: OMEPRAZOLE
     Route: 065
  3. SULFAMETHOXAZOLE AND TRIMETHOPRIM [Concomitant]
     Active Substance: SULFAMETHOXAZOLE\TRIMETHOPRIM
     Route: 065
  4. CALCIUM CITRATE W/COLECALCIFEROL/CO/01795301/ [Concomitant]
     Route: 065
  5. SIMVASTATIN. [Concomitant]
     Active Substance: SIMVASTATIN
     Route: 065
  6. LOSARTAN. [Concomitant]
     Active Substance: LOSARTAN
     Route: 065
  7. DEXAMETHASONE. [Concomitant]
     Active Substance: DEXAMETHASONE
     Indication: PLASMA CELL MYELOMA
     Dosage: 10 CYCLES
     Route: 042
  8. ASPRIN [Concomitant]
     Active Substance: ASPIRIN
     Route: 065
  9. ACYCLOVIR                          /00587301/ [Concomitant]
     Active Substance: ACYCLOVIR
     Route: 065
  10. LENALIDOMIDE [Concomitant]
     Active Substance: LENALIDOMIDE
     Indication: PLASMA CELL MYELOMA
     Dosage: 10 CYCLES, 28-DAY CYCLE
     Route: 065

REACTIONS (6)
  - Nausea [Recovered/Resolved]
  - Choroidal effusion [Recovered/Resolved]
  - Rhinorrhoea [Recovered/Resolved]
  - Infusion related reaction [Recovered/Resolved]
  - Nasal congestion [Recovered/Resolved]
  - Sneezing [Recovered/Resolved]
